FAERS Safety Report 8036389-4 (Version None)
Quarter: 2012Q1

REPORT INFORMATION
  Report Type: 
  Country: None (occurrence: None)
  Receive Date: 20120111
  Receipt Date: 20120110
  Transmission Date: 20120608
  Serious: Yes (Death, Hospitalization, Other)
  Sender: FDA-Public Use
  Company Number: PHHY2011NL111497

PATIENT
  Sex: Male
  Weight: 113 kg

DRUGS (11)
  1. ZOMETA [Suspect]
     Dosage: 4 MG, ONCE PER 28 DAYS
     Route: 042
     Dates: start: 20111221
  2. ACETAMINOPHEN [Concomitant]
     Dosage: 1000 UKN, UNK
  3. ZOMETA [Suspect]
     Indication: METASTASES TO BONE
     Dosage: 4 MG, ONCE PER 28 DAYS
     Route: 042
     Dates: start: 20111122
  4. OMEPRAZOLE [Concomitant]
     Dosage: 40 UKN, UNK
  5. OXYCODONE HCL [Concomitant]
     Dosage: 20 UKN, PRN
  6. LACTULOSE [Concomitant]
     Dosage: UNK UKN, PRN
  7. MESALAMINE [Concomitant]
     Dosage: 50 UKN, UNK
  8. METOCLOPRAMIDE [Concomitant]
     Dosage: 10 UKN, PRN
  9. MIDAZOLAM [Concomitant]
     Indication: SEDATION
     Dosage: UNK UKN, UNK
     Route: 042
     Dates: start: 20111230
  10. FENTANYL [Concomitant]
     Dosage: 150 UKN, ONCE IN 3 DAYS
  11. MORPHINE [Concomitant]
     Dosage: UNK UKN, UNK
     Route: 042
     Dates: start: 20111230

REACTIONS (5)
  - ENTEROCOCCAL SEPSIS [None]
  - NEOPLASM PROGRESSION [None]
  - PYREXIA [None]
  - NEOPLASM MALIGNANT [None]
  - SEDATION [None]
